FAERS Safety Report 21936631 (Version 1)
Quarter: 2023Q1

REPORT INFORMATION
  Report Type: Spontaneous
  Country: CO (occurrence: CO)
  Receive Date: 20230201
  Receipt Date: 20230201
  Transmission Date: 20230418
  Serious: Yes (Other)
  Sender: FDA-Public Use
  Company Number: CO-PFIZER INC-PV202200058362

PATIENT
  Age: 61 Year
  Sex: Female

DRUGS (1)
  1. ENBREL [Suspect]
     Active Substance: ETANERCEPT
     Indication: Rheumatoid arthritis
     Dosage: 50 MILLIGRAM, WEEKLY
     Route: 058

REACTIONS (8)
  - Device failure [Unknown]
  - Device physical property issue [Unknown]
  - Device malfunction [Unknown]
  - Poor quality device used [Unknown]
  - Drug dose omission by device [Unknown]
  - Arthralgia [Unknown]
  - Intentional device misuse [Unknown]
  - Product lot number issue [Unknown]

NARRATIVE: CASE EVENT DATE: 20220830
